FAERS Safety Report 12947420 (Version 3)
Quarter: 2016Q4

REPORT INFORMATION
  Report Type: Spontaneous
  Country: IT (occurrence: IT)
  Receive Date: 20161116
  Receipt Date: 20161123
  Transmission Date: 20170207
  Serious: Yes (Other)
  Sender: FDA-Public Use
  Company Number: IT-PFIZER INC-2016534458

PATIENT
  Age: 19 Year
  Sex: Female

DRUGS (3)
  1. GABAPENTIN. [Suspect]
     Active Substance: GABAPENTIN
     Dosage: 1200 MG, DAILY(1200 MG, TOTAL (4 DOSES OF GABAPENTIN 300 MG))
     Route: 048
     Dates: start: 20161029, end: 20161029
  2. TOPAMAX [Suspect]
     Active Substance: TOPIRAMATE
     Dosage: 600 MG, DAILY (40 DF TOTAL (40 DOSES OF TOPAMAX 15 MG))
     Route: 048
     Dates: start: 20161029, end: 20161029
  3. XANAX [Suspect]
     Active Substance: ALPRAZOLAM
     Dosage: 3 MG, DAILY (6 DF TOTAL (6 DOSES OF XANAX 0.50 MG))
     Route: 048
     Dates: start: 20161029, end: 20161029

REACTIONS (4)
  - Sluggishness [Unknown]
  - Intentional self-injury [Unknown]
  - Overdose [Unknown]
  - Intentional overdose [Unknown]

NARRATIVE: CASE EVENT DATE: 20161029
